FAERS Safety Report 6790130-1 (Version None)
Quarter: 2010Q2

REPORT INFORMATION
  Report Type: 
  Country: None (occurrence: None)
  Receive Date: 20100624
  Receipt Date: 20100618
  Transmission Date: 20101027
  Serious: Yes (Other)
  Sender: FDA-Public Use
  Company Number: AU-NOVOPROD-308153

PATIENT
  Age: 44 Year
  Sex: Female
  Weight: 81 kg

DRUGS (2)
  1. NOVOMIX 30 FLEXPEN [Suspect]
     Indication: TYPE 2 DIABETES MELLITUS
     Dosage: UNK
     Dates: start: 20060101
  2. NOVOMIX 30 FLEXPEN [Suspect]
     Dosage: 30 IU, QD
     Route: 058
     Dates: start: 20070901

REACTIONS (3)
  - CONTUSION [None]
  - DEVICE BREAKAGE [None]
  - DEVICE MALFUNCTION [None]
